FAERS Safety Report 21010663 (Version 1)
Quarter: 2022Q2

REPORT INFORMATION
  Report Type: Spontaneous
  Country: US (occurrence: US)
  Receive Date: 20220627
  Receipt Date: 20220627
  Transmission Date: 20220721
  Serious: No
  Sender: FDA-Public Use
  Company Number: US-KARYOPHARM-2022KPT000641

PATIENT

DRUGS (9)
  1. XPOVIO [Suspect]
     Active Substance: SELINEXOR
     Indication: Plasma cell myeloma
     Dosage: 80 MG, WEEKLY
     Route: 048
     Dates: start: 20220505, end: 20220531
  2. POMALYST [Concomitant]
     Active Substance: POMALIDOMIDE
     Indication: Plasma cell myeloma
     Dosage: UNK
     Dates: start: 202205, end: 20220531
  3. ASPIRIN [Concomitant]
     Active Substance: ASPIRIN
  4. DEXAMETHASONE [Concomitant]
     Active Substance: DEXAMETHASONE
  5. OLANZAPINE [Concomitant]
     Active Substance: OLANZAPINE
  6. PROCHLORPERAZINE [Concomitant]
     Active Substance: PROCHLORPERAZINE
  7. PROPECIA [Concomitant]
     Active Substance: FINASTERIDE
  8. VALACYCLOVIR HYDROCHLORIDE [Concomitant]
     Active Substance: VALACYCLOVIR HYDROCHLORIDE
  9. ZOFRAN [Concomitant]
     Active Substance: ONDANSETRON HYDROCHLORIDE

REACTIONS (1)
  - Drug ineffective [Unknown]

NARRATIVE: CASE EVENT DATE: 20220531
